FAERS Safety Report 7077804-2 (Version None)
Quarter: 2010Q4

REPORT INFORMATION
  Report Type: 
  Country: None (occurrence: None)
  Receive Date: 20101101
  Receipt Date: 20101019
  Transmission Date: 20110411
  Serious: Yes (Other)
  Sender: FDA-Public Use
  Company Number: PHHY2010JP68870

PATIENT
  Age: 80 Year
  Sex: Female

DRUGS (4)
  1. AREDIA [Suspect]
     Indication: METASTASES TO BONE
     Dosage: 1688 MG, UNK
     Route: 041
  2. ZOMETA [Suspect]
     Indication: METASTASES TO BONE
     Dosage: UNK MG, UNK
     Route: 041
  3. ANTINEOPLASTIC AGENTS [Concomitant]
  4. HORMONES [Concomitant]

REACTIONS (1)
  - TONGUE NEOPLASM MALIGNANT STAGE UNSPECIFIED [None]
